FAERS Safety Report 9254042 (Version 3)
Quarter: 2013Q3

REPORT INFORMATION
  Report Type: Spontaneous
  Country: IT (occurrence: None)
  Receive Date: 20130419
  Receipt Date: 20130807
  Transmission Date: 20140515
  Serious: Yes (Hospitalization)
  Sender: FDA-Public Use
  Company Number: FK201301163

PATIENT
  Age: 77 Year
  Sex: Male

DRUGS (12)
  1. SODIUM CHLORIDE 0.9% [Suspect]
     Indication: CARDIAC FAILURE
     Route: 042
     Dates: start: 20130403, end: 20130403
  2. ALBITAL [Suspect]
     Indication: CARDIAC FAILURE
     Route: 042
     Dates: start: 20130403, end: 20130403
  3. LASIX (FUROSEMIDE) (FUROSEMIDE) [Suspect]
     Indication: PRODUCT USED FOR UNKNOWN INDICATION
     Dosage: 250MG725ML
     Route: 042
     Dates: start: 20130402, end: 20130403
  4. TAVOR (LORAZEPAM) (LORAZEPAM) [Concomitant]
  5. LANOXIN (DIGOXIN) (DIGOXIN) [Concomitant]
  6. CARDIOASPIRIN (ACETYLSALICYLIC ACID) (ACETYLSALICYLIC ACID) [Concomitant]
  7. LUVION (CANRENOIC ACID) (CANRENOIC ACID) [Concomitant]
  8. RESPICUR (THEOPHYLLINE) (THEOPHYLLINE) [Concomitant]
  9. XATRAL (ALFUZOSIN) (ALFUZOSIN) [Concomitant]
  10. INSULIN (INSULIN) (INSULIN) [Concomitant]
  11. BISOPROLOL HEMIFUMARATE (BISOPROLOL HEMIFUMARATE) (BISOPROLOL HEMIFUMARATE) [Concomitant]
  12. ALLOPURINOL (ALLOPURINOL) (ALLOPURINOL) [Concomitant]

REACTIONS (3)
  - Chills [None]
  - Somnolence [None]
  - Pyrexia [None]
